FAERS Safety Report 7791774-0 (Version None)
Quarter: 2011Q4

REPORT INFORMATION
  Report Type: 
  Country: None (occurrence: None)
  Receive Date: 20111003
  Receipt Date: 20110927
  Transmission Date: 20120403
  Serious: Yes (Other)
  Sender: FDA-Public Use
  Company Number: US-PFIZER INC-2010081054

PATIENT
  Sex: Male

DRUGS (3)
  1. SKELAXIN [Concomitant]
     Indication: PAIN
     Dosage: UNK
     Dates: start: 20040101
  2. CHANTIX [Suspect]
     Indication: SMOKING CESSATION THERAPY
     Dosage: 1 MG, UNK
     Dates: start: 20090501, end: 20090101
  3. OXYCONTIN [Concomitant]
     Indication: PAIN
     Dosage: UNK
     Dates: start: 20050101

REACTIONS (5)
  - SUICIDAL IDEATION [None]
  - DEPRESSION [None]
  - AMNESIA [None]
  - IRRITABILITY [None]
  - AGGRESSION [None]
